FAERS Safety Report 7526449-6 (Version None)
Quarter: 2011Q2

REPORT INFORMATION
  Report Type: 
  Country: None (occurrence: None)
  Receive Date: 20110606
  Receipt Date: 20110524
  Transmission Date: 20111010
  Serious: Yes (Hospitalization, Other)
  Sender: FDA-Public Use
  Company Number: US-CELGENEUS-163-21880-11050063

PATIENT
  Age: 90 Year
  Sex: Female

DRUGS (11)
  1. GLYBURIDE [Concomitant]
     Dosage: 5 MILLIGRAM
     Route: 065
  2. CALCIUM CARBONATE [Concomitant]
     Dosage: 1
     Route: 065
  3. ISTALOL [Concomitant]
     Dosage: 1 DROPS
     Route: 065
  4. REVLIMID [Suspect]
     Dosage: 10 MILLIGRAM
     Route: 048
     Dates: start: 20090303, end: 20090601
  5. REVLIMID [Suspect]
     Dosage: 5 MILLIGRAM
     Route: 048
     Dates: start: 20110308, end: 20110331
  6. ENALAPRIL MALEATE [Concomitant]
     Dosage: 5 MILLIGRAM
     Route: 065
  7. CENTRUM SILVER [Concomitant]
     Route: 065
  8. FUROSEMIDE [Concomitant]
     Dosage: 40 MILLIGRAM
     Route: 065
  9. LEVOXYL [Concomitant]
     Dosage: .088 MILLIGRAM
     Route: 065
  10. ASPIRIN [Concomitant]
     Dosage: 1
     Route: 065
  11. XALATAN [Concomitant]
     Dosage: RIGHT AND LEFT EYE
     Route: 065

REACTIONS (2)
  - WHITE BLOOD CELL COUNT DECREASED [None]
  - PLATELET COUNT INCREASED [None]
